FAERS Safety Report 25840478 (Version 2)
Quarter: 2025Q4

REPORT INFORMATION
  Report Type: Spontaneous
  Country: US (occurrence: US)
  Receive Date: 20250924
  Receipt Date: 20251114
  Transmission Date: 20260117
  Serious: No
  Sender: NEUROCRINE BIOSCIENCES
  Company Number: US-NBI-NBI-US-3666-2025

PATIENT
  Age: 67 Year
  Sex: Male

DRUGS (1)
  1. INGREZZA [Suspect]
     Active Substance: VALBENAZINE DITOSYLATE
     Indication: Tardive dyskinesia
     Dosage: 80 MILLIGRAM, QD
     Route: 065

REACTIONS (2)
  - Tardive dyskinesia [Recovered/Resolved]
  - Treatment noncompliance [Unknown]
